FAERS Safety Report 25380549 (Version 1)
Quarter: 2025Q2

REPORT INFORMATION
  Report Type: Spontaneous
  Country: PL (occurrence: PL)
  Receive Date: 20250530
  Receipt Date: 20250530
  Transmission Date: 20250717
  Serious: Yes (Hospitalization)
  Sender: ABBVIE
  Company Number: PL-ABBVIE-6304426

PATIENT
  Sex: Male

DRUGS (3)
  1. RINVOQ [Suspect]
     Active Substance: UPADACITINIB
     Indication: Product used for unknown indication
     Route: 048
     Dates: start: 2024
  2. RINVOQ [Suspect]
     Active Substance: UPADACITINIB
     Indication: Product used for unknown indication
     Route: 048
     Dates: start: 2024
  3. immunoglobulin [Concomitant]
     Indication: Product used for unknown indication
     Dosage: 1,75G/KG BODY WEIGHT.- TOTAL 280G, TOTAL 3 INFUSIONS EVERY 4 WEEKS.
     Route: 042
     Dates: start: 202412, end: 202502

REACTIONS (5)
  - Mental impairment [Unknown]
  - Blood creatine phosphokinase increased [Unknown]
  - Myalgia [Unknown]
  - Myopathy [Unknown]
  - Muscular weakness [Unknown]

NARRATIVE: CASE EVENT DATE: 20240101
